FAERS Safety Report 5867061-4 (Version None)
Quarter: 2008Q3

REPORT INFORMATION
  Report Type: 
  Country: None (occurrence: None)
  Receive Date: 20080902
  Receipt Date: 20080822
  Transmission Date: 20090109
  Serious: Yes (Hospitalization)
  Sender: FDA-Public Use
  Company Number: B0532663A

PATIENT
  Age: 60 Year
  Sex: Female

DRUGS (2)
  1. HYCAMTIN [Suspect]
     Dosage: 1MG PER DAY
     Route: 065
     Dates: start: 20080721
  2. CISPLATIN [Concomitant]
     Dosage: 35MG PER DAY
     Route: 042
     Dates: start: 20080721, end: 20080721

REACTIONS (3)
  - ABDOMINAL PAIN [None]
  - LIPASE INCREASED [None]
  - PANCREATITIS [None]
